FAERS Safety Report 12328480 (Version 1)
Quarter: 2016Q2

REPORT INFORMATION
  Report Type: Spontaneous
  Country: US (occurrence: US)
  Receive Date: 20160503
  Receipt Date: 20160503
  Transmission Date: 20160815
  Serious: No
  Sender: FDA-Public Use
  Company Number: US-BEH-2015048126

PATIENT
  Sex: Female
  Weight: 42 kg

DRUGS (13)
  1. ZOLOFT [Concomitant]
     Active Substance: SERTRALINE HYDROCHLORIDE
  2. TRILEPTAL [Concomitant]
     Active Substance: OXCARBAZEPINE
  3. CLONIDINE. [Concomitant]
     Active Substance: CLONIDINE
  4. HIZENTRA [Suspect]
     Active Substance: HUMAN IMMUNOGLOBULIN G
     Indication: PRODUCT USED FOR UNKNOWN INDICATION
     Route: 058
  5. MIRALAX [Concomitant]
     Active Substance: POLYETHYLENE GLYCOL 3350
  6. CALCIFEROL [Concomitant]
     Active Substance: ERGOCALCIFEROL
  7. PRIMODONE [Concomitant]
     Active Substance: PRIMIDONE
  8. EPIPEN [Concomitant]
     Active Substance: EPINEPHRINE
  9. LIDOCAINE. [Concomitant]
     Active Substance: LIDOCAINE
  10. LORAZEPAM. [Concomitant]
     Active Substance: LORAZEPAM
  11. CLONAZEPAM. [Concomitant]
     Active Substance: CLONAZEPAM
  12. GNP MELATONIN [Concomitant]
  13. DIPHENHYDRAMINE. [Concomitant]
     Active Substance: DIPHENHYDRAMINE

REACTIONS (1)
  - Headache [Unknown]
